FAERS Safety Report 8836566 (Version 1)
Quarter: 2012Q4

REPORT INFORMATION
  Report Type: Spontaneous
  Country: US (occurrence: None)
  Receive Date: 20121009
  Receipt Date: 20121009
  Transmission Date: 20130627
  Serious: Yes (Disabling, Other)
  Sender: FDA-Public Use
  Company Number: 2012MA011717

PATIENT
  Sex: Male

DRUGS (2)
  1. METOCLOPRAMIDE TABLETS USP, 10 MG (PUREPAC) [Suspect]
     Indication: NAUSEA
     Dates: start: 2002, end: 201107
  2. METOCLOPRAMIDE TABLETS USP, 10 MG (PUREPAC) [Suspect]
     Indication: ACID REFLUX
     Dates: start: 2002, end: 201107

REACTIONS (19)
  - Incorrect drug administration duration [None]
  - Nervous system disorder [None]
  - Multiple injuries [None]
  - Nervous system disorder [None]
  - Extrapyramidal disorder [None]
  - Tardive dyskinesia [None]
  - Convulsion [None]
  - Eye movement disorder [None]
  - Tic [None]
  - Muscle twitching [None]
  - Movement disorder [None]
  - Muscle twitching [None]
  - Economic problem [None]
  - Activities of daily living impaired [None]
  - Deformity [None]
  - Pain [None]
  - Mental disorder [None]
  - Quality of life decreased [None]
  - Family stress [None]
